FAERS Safety Report 10425486 (Version 2)
Quarter: 2014Q4

REPORT INFORMATION
  Report Type: Spontaneous
  Country: US (occurrence: US)
  Receive Date: 20140902
  Receipt Date: 20141027
  Transmission Date: 20150528
  Serious: Yes (Other)
  Sender: FDA-Public Use
  Company Number: US-009507513-1409USA000381

PATIENT
  Sex: Female

DRUGS (3)
  1. JANUVIA [Suspect]
     Active Substance: SITAGLIPTIN PHOSPHATE
     Dosage: 50 MG, QD
     Route: 048
  2. JANUVIA [Suspect]
     Active Substance: SITAGLIPTIN PHOSPHATE
     Indication: TYPE 2 DIABETES MELLITUS
     Dosage: 25 MG, QD
     Route: 048
     Dates: start: 2006
  3. JANUVIA [Suspect]
     Active Substance: SITAGLIPTIN PHOSPHATE
     Dosage: 100 MG, QD
     Route: 048
     Dates: end: 20121107

REACTIONS (10)
  - Liver disorder [Unknown]
  - Thyroid cyst [Not Recovered/Not Resolved]
  - Hysterectomy [Unknown]
  - Renal disorder [Unknown]
  - Pancreatic carcinoma [Not Recovered/Not Resolved]
  - Spinal osteoarthritis [Unknown]
  - Cholelithiasis [Unknown]
  - Pancreaticoduodenectomy [Unknown]
  - Pancreatitis [Not Recovered/Not Resolved]
  - Hepatic steatosis [Unknown]

NARRATIVE: CASE EVENT DATE: 2007
